FAERS Safety Report 9296588 (Version 2)
Quarter: 2013Q3

REPORT INFORMATION
  Report Type: Report from Study
  Country: BR (occurrence: BR)
  Receive Date: 20130517
  Receipt Date: 20130814
  Transmission Date: 20140515
  Serious: Yes (Other)
  Sender: FDA-Public Use
  Company Number: PHHY2013BR048257

PATIENT
  Sex: Male

DRUGS (2)
  1. DIOVAN [Suspect]
     Indication: HYPERTENSION
     Dosage: 160 MG, UNK
  2. SERTRALINE [Suspect]
     Indication: DEPRESSION

REACTIONS (6)
  - Cerebrovascular accident [Recovering/Resolving]
  - Blood pressure increased [Recovering/Resolving]
  - Somnolence [Recovering/Resolving]
  - Apathy [Recovering/Resolving]
  - Local swelling [Recovering/Resolving]
  - Drug ineffective [Recovering/Resolving]
